FAERS Safety Report 9272273 (Version 1)
Quarter: 2013Q2

REPORT INFORMATION
  Report Type: Spontaneous
  Country: US (occurrence: US)
  Receive Date: 20130506
  Receipt Date: 20130506
  Transmission Date: 20140414
  Serious: No
  Sender: FDA-Public Use
  Company Number: US-ASTRAZENECA-2013SE09811

PATIENT
  Age: 65 Year
  Sex: Male

DRUGS (2)
  1. PRILOSEC OTC [Suspect]
     Route: 048
     Dates: start: 201212
  2. ZOCOR [Concomitant]
     Dosage: UNKNOWN

REACTIONS (2)
  - Pain in extremity [Recovered/Resolved]
  - Paraesthesia [Recovered/Resolved]
